FAERS Safety Report 6683067-X (Version None)
Quarter: 2010Q2

REPORT INFORMATION
  Report Type: 
  Country: None (occurrence: None)
  Receive Date: 20100415
  Receipt Date: 20100408
  Transmission Date: 20101027
  Serious: Yes (Hospitalization)
  Sender: FDA-Public Use
  Company Number: PHHY2010US18453

PATIENT
  Sex: Female
  Weight: 86 kg

DRUGS (1)
  1. FEMARA [Suspect]
     Indication: BREAST CANCER
     Dosage: 2.5 MG, QD
     Route: 048
     Dates: start: 20070401

REACTIONS (7)
  - ABDOMINAL PAIN [None]
  - ADENOMA BENIGN [None]
  - COLON NEOPLASM [None]
  - COLON POLYPECTOMY [None]
  - COLONIC POLYP [None]
  - STAPHYLOCOCCAL INFECTION [None]
  - TUMOUR EXCISION [None]
